FAERS Safety Report 8153067-1 (Version None)
Quarter: 2012Q1

REPORT INFORMATION
  Report Type: 
  Country: None (occurrence: None)
  Receive Date: 20120221
  Receipt Date: 20120213
  Transmission Date: 20120608
  Serious: Yes (Hospitalization)
  Sender: FDA-Public Use
  Company Number: JP-PFIZER INC-2011282315

PATIENT
  Age: 65 Year
  Sex: Male
  Weight: 56 kg

DRUGS (7)
  1. EPIRUBICIN HYDROCHLORIDE [Suspect]
     Dosage: 10 MG, MONTHLY
     Route: 043
     Dates: start: 20090801, end: 20101215
  2. NORVASC [Concomitant]
     Indication: HYPERTENSION
     Dosage: 2.5 MG, 1X/DAY
     Route: 048
     Dates: start: 20030101, end: 20101227
  3. PURSENNID [Concomitant]
     Indication: CONSTIPATION
     Dosage: 24 MG, 1X/DAY
     Route: 048
     Dates: start: 20030101, end: 20101227
  4. EPIRUBICIN HYDROCHLORIDE [Suspect]
     Indication: BLADDER CANCER
     Dosage: 10 MG, 3X/DAY
     Route: 043
     Dates: start: 20090813, end: 20090813
  5. EPIRUBICIN HYDROCHLORIDE [Suspect]
     Dosage: 10 MG, UNK
     Dates: start: 20100215
  6. ASPIRIN [Concomitant]
     Indication: MYOCARDIAL INFARCTION
     Dosage: 100 MG, 1X/DAY
     Route: 048
     Dates: start: 20030101, end: 20101227
  7. ISALON [Concomitant]
     Indication: PROPHYLAXIS AGAINST GASTROINTESTINAL ULCER
     Dosage: 100 MG, 1X/DAY
     Route: 048
     Dates: start: 20030101, end: 20101227

REACTIONS (1)
  - INTERSTITIAL LUNG DISEASE [None]
